FAERS Safety Report 9464780 (Version 1)
Quarter: 2013Q3

REPORT INFORMATION
  Report Type: Spontaneous
  Country: FR (occurrence: FR)
  Receive Date: 20130819
  Receipt Date: 20130819
  Transmission Date: 20140515
  Serious: Yes (Hospitalization)
  Sender: FDA-Public Use
  Company Number: FR-VIIV HEALTHCARE LIMITED-B0914563A

PATIENT
  Age: 62 Year
  Sex: Female

DRUGS (4)
  1. KIVEXA [Suspect]
     Indication: HIV INFECTION
     Dosage: 1UNIT PER DAY
     Route: 048
     Dates: start: 20061220
  2. FLIXOTIDE [Suspect]
     Indication: COUGH
     Route: 055
     Dates: end: 201012
  3. KALETRA [Suspect]
     Indication: HIV INFECTION
     Dosage: 1UNIT PER DAY
     Route: 048
     Dates: start: 20060103, end: 20130702
  4. KEPPRA [Suspect]
     Indication: PROPHYLAXIS
     Route: 048
     Dates: start: 201010

REACTIONS (8)
  - Cushing^s syndrome [Recovered/Resolved]
  - Myalgia [Recovered/Resolved]
  - General physical health deterioration [Unknown]
  - Pain [Unknown]
  - Oedema [Unknown]
  - Aldolase increased [Recovered/Resolved]
  - Drug interaction [Unknown]
  - Off label use [Unknown]
